FAERS Safety Report 4638346-4 (Version None)
Quarter: 2005Q2

REPORT INFORMATION
  Report Type: 
  Country: None (occurrence: None)
  Receive Date: 20050418
  Receipt Date: 20050111
  Transmission Date: 20051028
  Serious: Yes (Hospitalization)
  Sender: FDA-Public Use
  Company Number: US-MERCK-0501USA01202

PATIENT
  Age: 57 Year
  Sex: Female
  Weight: 130 kg

DRUGS (7)
  1. VIOXX [Suspect]
     Indication: ARTHRITIS
     Route: 048
     Dates: start: 20010915, end: 20040808
  2. VIOXX [Concomitant]
     Route: 048
  3. VIOXX [Concomitant]
     Route: 048
  4. DIOVAN [Concomitant]
     Route: 048
  5. DIOVAN [Concomitant]
     Route: 048
  6. DIOVAN [Concomitant]
     Route: 048
  7. ZYRTEC [Concomitant]
     Route: 048

REACTIONS (15)
  - ANAEMIA [None]
  - ARTHRITIS INFECTIVE [None]
  - BLOOD GLUCOSE INCREASED [None]
  - CARDIAC FAILURE CONGESTIVE [None]
  - CAROTID ARTERY STENOSIS [None]
  - CEREBRAL INFARCTION [None]
  - CEREBROVASCULAR ACCIDENT [None]
  - DIZZINESS [None]
  - DYSPHAGIA [None]
  - EMOTIONAL DISTRESS [None]
  - KNEE ARTHROPLASTY [None]
  - NEURALGIA [None]
  - PLATELET COUNT INCREASED [None]
  - SLEEP APNOEA SYNDROME [None]
  - WHITE BLOOD CELL COUNT INCREASED [None]
